FAERS Safety Report 7829940-8 (Version None)
Quarter: 2011Q4

REPORT INFORMATION
  Report Type: 
  Country: None (occurrence: None)
  Receive Date: 20111021
  Receipt Date: 20110919
  Transmission Date: 20120403
  Serious: No
  Sender: FDA-Public Use
  Company Number: US-BAYER-2011-088199

PATIENT
  Sex: Female

DRUGS (1)
  1. MENOSTAR [Suspect]

REACTIONS (1)
  - MEDICAL DEVICE DISCOMFORT [None]
